FAERS Safety Report 4831763-9 (Version None)
Quarter: 2005Q4

REPORT INFORMATION
  Report Type: 
  Country: None (occurrence: None)
  Receive Date: 20051118
  Receipt Date: 20051111
  Transmission Date: 20060501
  Serious: Yes (Other)
  Sender: FDA-Public Use
  Company Number: SE-MERCK-0511SWE00009

PATIENT
  Age: 82 Year
  Sex: Male

DRUGS (1)
  1. VIOXX [Suspect]
     Indication: PROSTATE CANCER
     Route: 048

REACTIONS (1)
  - CEREBROVASCULAR ACCIDENT [None]
